FAERS Safety Report 6597766-1 (Version None)
Quarter: 2010Q1

REPORT INFORMATION
  Report Type: 
  Country: None (occurrence: None)
  Receive Date: 20100223
  Receipt Date: 20100218
  Transmission Date: 20100710
  Serious: Yes (Hospitalization, Other)
  Sender: FDA-Public Use
  Company Number: US-MERCK-1002USA02020

PATIENT
  Age: 51 Year
  Sex: Male

DRUGS (3)
  1. ISENTRESS [Suspect]
     Indication: HIV INFECTION
     Route: 048
     Dates: start: 20090101
  2. PREZISTA [Concomitant]
     Route: 065
  3. INTELENCE [Concomitant]
     Route: 065

REACTIONS (2)
  - INTESTINAL OBSTRUCTION [None]
  - PERITONITIS [None]
